FAERS Safety Report 8161988-9 (Version None)
Quarter: 2012Q1

REPORT INFORMATION
  Report Type: 
  Country: None (occurrence: None)
  Receive Date: 20120224
  Receipt Date: 20120223
  Transmission Date: 20120608
  Serious: Yes (Hospitalization)
  Sender: FDA-Public Use
  Company Number: JP-BAYER-2011-033565

PATIENT
  Age: 74 Year
  Sex: Male

DRUGS (13)
  1. NEXAVAR [Suspect]
     Indication: HEPATIC NEOPLASM MALIGNANT
     Dosage: 400 MG, QD
     Route: 048
     Dates: start: 20100830, end: 20100920
  2. ISOSORBIDE DINITRATE [Concomitant]
     Dosage: UNK
     Route: 062
     Dates: start: 20090701
  3. ADOFEED [Concomitant]
     Dosage: UNK
     Route: 062
     Dates: start: 20090701
  4. MAGNESIUM SULFATE [Concomitant]
     Dosage: DAILY DOSE 750 MG
     Route: 048
     Dates: start: 20090701
  5. FAMOTIDINE [Concomitant]
     Dosage: DAILY DOSE 20 MG
     Route: 048
     Dates: start: 20101021
  6. KERATINAMIN [Concomitant]
     Dosage: UNK
     Route: 061
     Dates: start: 20100825
  7. OLMESARTAN MEDOXOMIL [Concomitant]
     Dosage: UNK
     Route: 048
     Dates: start: 20090701
  8. SIGMART [Concomitant]
     Dosage: DAILY DOSE 15 MG
     Route: 048
     Dates: start: 20090701
  9. PURSENNID [Concomitant]
     Dosage: DAILY DOSE 12 MG
     Route: 048
     Dates: start: 20080626
  10. NEXAVAR [Suspect]
     Dosage: 800 MG, QD
     Dates: start: 20100921, end: 20110227
  11. ASPIRIN [Concomitant]
     Dosage: DAILY DOSE 100 MG
     Route: 048
     Dates: start: 20090701
  12. NEXAVAR [Suspect]
     Dosage: 800 MG, QD
     Route: 048
     Dates: start: 20110304, end: 20110530
  13. TOPSYM [Concomitant]
     Dosage: UNK
     Route: 061
     Dates: start: 20101104

REACTIONS (4)
  - PALMAR-PLANTAR ERYTHRODYSAESTHESIA SYNDROME [None]
  - PAIN OF SKIN [None]
  - DEEP VEIN THROMBOSIS [None]
  - BLOOD PRESSURE INCREASED [None]
